FAERS Safety Report 24423296 (Version 1)
Quarter: 2024Q4

REPORT INFORMATION
  Report Type: Spontaneous
  Country: JP (occurrence: JP)
  Receive Date: 20241010
  Receipt Date: 20241010
  Transmission Date: 20250114
  Serious: Yes (Death)
  Sender: ELI LILLY AND CO
  Company Number: JP-ELI_LILLY_AND_COMPANY-JP202410004728

PATIENT
  Age: 79 Year
  Sex: Female

DRUGS (2)
  1. MOUNJARO [Suspect]
     Active Substance: TIRZEPATIDE
     Indication: Type 2 diabetes mellitus
     Dosage: UNK
     Route: 058
  2. MOUNJARO [Suspect]
     Active Substance: TIRZEPATIDE
     Dosage: 5 MG, WEEKLY (1/W)
     Route: 058

REACTIONS (1)
  - Cerebral infarction [Fatal]

NARRATIVE: CASE EVENT DATE: 20240401
